FAERS Safety Report 10084719 (Version 1)
Quarter: 2014Q2

REPORT INFORMATION
  Report Type: Spontaneous
  Country: GB (occurrence: GB)
  Receive Date: 20140417
  Receipt Date: 20140417
  Transmission Date: 20141212
  Serious: Yes (Other)
  Sender: FDA-Public Use
  Company Number: GB-GLAXOSMITHKLINE-B0984418A

PATIENT
  Sex: Male

DRUGS (5)
  1. VENTOLIN [Suspect]
     Dosage: 2PUFF FOUR TIMES PER DAY
     Dates: start: 1998
  2. SERETIDE [Concomitant]
  3. SPIRIVA RESPIMAT [Concomitant]
  4. PHYLLOCONTIN [Concomitant]
  5. MUCODYNE [Concomitant]

REACTIONS (6)
  - Laryngeal cancer [Unknown]
  - Palpitations [Unknown]
  - Nervousness [Unknown]
  - Headache [Unknown]
  - Muscle spasms [Unknown]
  - Product quality issue [Unknown]
